FAERS Safety Report 8390452-7 (Version None)
Quarter: 2012Q2

REPORT INFORMATION
  Report Type: 
  Country: None (occurrence: None)
  Receive Date: 20120529
  Receipt Date: 20120517
  Transmission Date: 20120825
  Serious: Yes (Other)
  Sender: FDA-Public Use
  Company Number: CA-JNJFOC-20120515309

PATIENT
  Sex: Female

DRUGS (1)
  1. REMICADE [Suspect]
     Indication: RHEUMATOID ARTHRITIS
     Dosage: FREQUENCY: ONCE EVERY 6 (UNITS UNSPECIFIED)
     Route: 042

REACTIONS (2)
  - RASH PUSTULAR [None]
  - KNEE ARTHROPLASTY [None]
